FAERS Safety Report 4745333-4 (Version None)
Quarter: 2005Q3

REPORT INFORMATION
  Report Type: 
  Country: None (occurrence: None)
  Receive Date: 20050812
  Receipt Date: 20050729
  Transmission Date: 20060218
  Serious: Yes (Death)
  Sender: FDA-Public Use
  Company Number: 2004106809

PATIENT
  Age: 24 Year
  Sex: Male

DRUGS (6)
  1. NEURONTIN [Suspect]
     Indication: BACK PAIN
     Dates: start: 20020705, end: 20021112
  2. MORPHINE [Suspect]
     Indication: PAIN
     Dosage: 3 IN 1 D
     Dates: end: 20021112
  3. DURAGESIC-100 [Suspect]
     Indication: PAIN
     Dosage: 175 MG (1 IN 1 D), TRANSDERMAL
     Route: 062
     Dates: end: 20021112
  4. HEROIN (DIAMORPHINE) [Suspect]
     Indication: ILL-DEFINED DISORDER
  5. CITALOPRAM (CITALOPRAM) [Suspect]
     Indication: ILL-DEFINED DISORDER
  6. PROPOXYPHENE HCL [Suspect]
     Indication: ILL-DEFINED DISORDER

REACTIONS (15)
  - ATHEROSCLEROSIS [None]
  - BRAIN OEDEMA [None]
  - COMPLETED SUICIDE [None]
  - FOAMING AT MOUTH [None]
  - INTENTIONAL MISUSE [None]
  - LOSS OF CONSCIOUSNESS [None]
  - MOUTH HAEMORRHAGE [None]
  - MULTIPLE DRUG OVERDOSE [None]
  - NERVOUS SYSTEM DISORDER [None]
  - OPIATES POSITIVE [None]
  - PULMONARY CONGESTION [None]
  - PULMONARY OEDEMA [None]
  - RESPIRATORY ARREST [None]
  - VENTRICULAR HYPERTROPHY [None]
  - VOMITING [None]
